FAERS Safety Report 4444731-6 (Version None)
Quarter: 2004Q3

REPORT INFORMATION
  Report Type: 
  Country: None (occurrence: None)
  Receive Date: 20040903
  Receipt Date: 20040823
  Transmission Date: 20050211
  Serious: Yes (Hospitalization, Other)
  Sender: FDA-Public Use
  Company Number: 2004059042

PATIENT
  Age: 57 Year
  Sex: Female
  Weight: 58 kg

DRUGS (7)
  1. ATORVASTATIN CALCIUM [Suspect]
     Indication: ILL-DEFINED DISORDER
     Dosage: 40 MG (1 IN 1 D); ORAL (SEE IMAGE)
     Route: 048
     Dates: start: 20040404, end: 20040701
  2. DILTIAZEM HYDROCHLORIDE [Suspect]
     Indication: ILL-DEFINED DISORDER
     Dosage: 120 MG (2 IN 1 D); ORAL (SEE IMAGE)
     Route: 048
     Dates: start: 20040624
  3. AMLODIPINE BESYLATE [Concomitant]
  4. PAROXETINE HYDROCHLORIDE [Concomitant]
  5. ACETYLSALICYLATE LYSINE [Concomitant]
  6. CLOPIDOGREL BISULFATE [Concomitant]
  7. ACEBUTOLOL HYDROCHLORIDE [Concomitant]

REACTIONS (7)
  - ANGINA UNSTABLE [None]
  - CHOLESTASIS [None]
  - CORONARY ARTERY STENOSIS [None]
  - CYTOLYTIC HEPATITIS [None]
  - DRUG TOXICITY [None]
  - FULL BLOOD COUNT ABNORMAL [None]
  - HEPATOCELLULAR DAMAGE [None]
